FAERS Safety Report 23142947 (Version 1)
Quarter: 2023Q4

REPORT INFORMATION
  Report Type: Spontaneous
  Country: US (occurrence: US)
  Receive Date: 20231103
  Receipt Date: 20231103
  Transmission Date: 20240109
  Serious: Yes (Other)
  Sender: FDA-Public Use
  Company Number: US-JNJFOC-20231063736

PATIENT
  Sex: Female

DRUGS (1)
  1. TALQUETAMAB [Suspect]
     Active Substance: TALQUETAMAB
     Indication: Product used for unknown indication
     Dosage: 4 STEP UP DOSE
     Route: 065

REACTIONS (3)
  - Neurotoxicity [Unknown]
  - Adrenal insufficiency [Unknown]
  - Stomatitis [Unknown]
